FAERS Safety Report 4993246-5 (Version None)
Quarter: 2006Q1

REPORT INFORMATION
  Report Type: 
  Country: None (occurrence: None)
  Receive Date: 20060314
  Receipt Date: 20050208
  Transmission Date: 20060701
  Serious: Yes (Other)
  Sender: FDA-Public Use
  Company Number: 200510394BCC

PATIENT
  Age: 43 Year
  Sex: Male
  Weight: 72.5755 kg

DRUGS (2)
  1. ALEVE (CAPLET) [Suspect]
     Indication: MYALGIA
     Dosage: 220 MG, ONCE, ORAL
     Route: 048
     Dates: start: 20050122
  2. ALEVE (CAPLET) [Suspect]
     Indication: PROPHYLAXIS
     Dosage: 220 MG, ONCE, ORAL
     Route: 048
     Dates: start: 20050122

REACTIONS (10)
  - ABDOMINAL PAIN UPPER [None]
  - ASTHENIA [None]
  - DEPRESSED LEVEL OF CONSCIOUSNESS [None]
  - DIARRHOEA [None]
  - DYSPNOEA [None]
  - HYPERHIDROSIS [None]
  - NAUSEA [None]
  - SWOLLEN TONGUE [None]
  - THROAT TIGHTNESS [None]
  - VISION BLURRED [None]
